FAERS Safety Report 6466958-4 (Version None)
Quarter: 2009Q4

REPORT INFORMATION
  Report Type: 
  Country: None (occurrence: None)
  Receive Date: 20091202
  Receipt Date: 20091120
  Transmission Date: 20100525
  Serious: Yes (Death)
  Sender: FDA-Public Use
  Company Number: NZ-ELI_LILLY_AND_COMPANY-NZ200911005150

PATIENT
  Sex: Female

DRUGS (4)
  1. ZYPREXA [Suspect]
     Indication: SCHIZOPHRENIA
     Dosage: 15 MG, DAILY (1/D)
     Route: 048
  2. RISPERIDONE [Concomitant]
     Indication: SCHIZOPHRENIA
     Dosage: UNK, DAILY (1/D)
     Route: 048
  3. CLONAZEPAM [Concomitant]
     Dosage: UNK, DAILY (1/D)
     Route: 048
  4. METOPROLOL TARTRATE [Concomitant]
     Dosage: UNK, DAILY (1/D)
     Route: 048

REACTIONS (2)
  - CARDIAC FAILURE [None]
  - DRUG LEVEL INCREASED [None]
